FAERS Safety Report 9240658 (Version 1)
Quarter: 2013Q1

REPORT INFORMATION
  Report Type: Spontaneous
  Country: US (occurrence: None)
  Receive Date: 20121120
  Receipt Date: 20121120
  Transmission Date: 20140127
  Serious: No
  Sender: FDA-Public Use
  Company Number: 1000038218

PATIENT
  Age: 56 Year
  Sex: Female

DRUGS (4)
  1. VIIBRYD [Suspect]
     Indication: DEPRESSION
     Route: 048
     Dates: start: 201208, end: 201208
  2. VITAMIN B12 (COBALAMIN) [Concomitant]
  3. ESTROGEN (ESTRADIOL) [Concomitant]
  4. TEMAZEPAM [Concomitant]

REACTIONS (2)
  - Insomnia [None]
  - Nausea [None]
